FAERS Safety Report 5540582-X (Version None)
Quarter: 2007Q4

REPORT INFORMATION
  Report Type: 
  Country: None (occurrence: None)
  Receive Date: 20071208
  Receipt Date: 20070802
  Transmission Date: 20080405
  Serious: No
  Sender: FDA-Public Use
  Company Number: US-AMGEN-KDL234928

PATIENT
  Sex: Female
  Weight: 50.8 kg

DRUGS (14)
  1. ENBREL [Suspect]
     Indication: PSORIASIS
     Route: 058
     Dates: start: 20070501
  2. ENBREL [Suspect]
     Indication: PSORIATIC ARTHROPATHY
  3. CLOBETASOL PROPIONATE [Concomitant]
     Dates: start: 20061101
  4. CLOBETASOL PROPIONATE [Concomitant]
     Dates: start: 20061101
  5. LIDOCAINE [Concomitant]
     Dates: start: 20061101
  6. IBUPROFEN [Concomitant]
     Dates: start: 20061101
  7. COUMADIN [Concomitant]
     Dates: start: 20061101
  8. CLARITIN-D [Concomitant]
     Dates: start: 20061101
  9. BUSPIRONE HYDROCHLORIDE [Concomitant]
     Dates: start: 20061101
  10. CALCIUM WITH VITAMIN D [Concomitant]
     Dates: start: 20061101
  11. IRON [Concomitant]
     Dates: start: 20061101
  12. VICODIN [Concomitant]
     Dates: start: 20061101
  13. PREVACID [Concomitant]
     Dates: start: 20061101
  14. FOSAMAX [Concomitant]
     Dates: start: 20061101

REACTIONS (2)
  - ARTHRALGIA [None]
  - OEDEMA PERIPHERAL [None]
